FAERS Safety Report 8588374-1 (Version None)
Quarter: 2012Q3

REPORT INFORMATION
  Report Type: 
  Country: None (occurrence: None)
  Receive Date: 20120813
  Receipt Date: 20120803
  Transmission Date: 20120928
  Serious: Yes (Hospitalization)
  Sender: FDA-Public Use
  Company Number: ZA-SANOFI-AVENTIS-2012SA055564

PATIENT
  Age: 47 Year
  Sex: Female

DRUGS (8)
  1. GLUCOPHAGE [Concomitant]
     Route: 048
     Dates: start: 20120723
  2. LANTUS SOLOSTAR [Suspect]
     Indication: TYPE 2 DIABETES MELLITUS
     Dosage: DOSE:78 UNIT(S)
     Route: 058
     Dates: start: 20110901, end: 20120723
  3. LANTUS SOLOSTAR [Suspect]
     Dosage: DOSE INCREASED DOSE:96 UNIT(S)
     Route: 058
     Dates: start: 20120723
  4. SIMVASTATIN [Concomitant]
     Route: 048
     Dates: start: 20110901
  5. SOLOSTAR [Suspect]
     Indication: DEVICE THERAPY
  6. GLUCOPHAGE [Concomitant]
     Route: 048
     Dates: start: 20110901, end: 20120723
  7. RABEPRAZOLE SODIUM [Concomitant]
     Indication: GASTRIC ULCER
     Route: 048
     Dates: start: 20120723
  8. PERINDOPRIL ERBUMINE [Concomitant]
     Indication: BLOOD PRESSURE
     Route: 048
     Dates: start: 20110901

REACTIONS (4)
  - DIZZINESS [None]
  - ABDOMINAL PAIN [None]
  - BLOOD GLUCOSE INCREASED [None]
  - GASTRIC ULCER [None]
